FAERS Safety Report 8960610 (Version 1)
Quarter: 2012Q4

REPORT INFORMATION
  Report Type: Spontaneous
  Country: GB (occurrence: None)
  Receive Date: 20121130
  Receipt Date: 20121130
  Transmission Date: 20130627
  Serious: Yes (Other)
  Sender: FDA-Public Use
  Company Number: GB-DEXPHARM-20121601

PATIENT
  Sex: Female

DRUGS (1)
  1. IBUPROFEN [Suspect]

REACTIONS (1)
  - Colitis microscopic [None]
